FAERS Safety Report 5126996-0 (Version None)
Quarter: 2006Q4

REPORT INFORMATION
  Report Type: 
  Country: None (occurrence: None)
  Receive Date: 20061013
  Receipt Date: 20061010
  Transmission Date: 20070319
  Serious: Yes (Hospitalization, Other)
  Sender: FDA-Public Use
  Company Number: US-GLAXOSMITHKLINE-A0623235A

PATIENT
  Sex: Female

DRUGS (2)
  1. LAMICTAL [Suspect]
     Indication: DRUG DISPENSING ERROR
     Dosage: 200MG TWICE PER DAY
     Route: 048
     Dates: start: 20061001
  2. OTHER MEDICATIONS [Concomitant]

REACTIONS (3)
  - DRUG DISPENSING ERROR [None]
  - MEDICATION ERROR [None]
  - RASH [None]
